FAERS Safety Report 10617142 (Version 1)
Quarter: 2014Q4

REPORT INFORMATION
  Report Type: Spontaneous
  Country: DE (occurrence: DE)
  Receive Date: 20141201
  Receipt Date: 20141201
  Transmission Date: 20150529
  Serious: Yes (Other)
  Sender: FDA-Public Use
  Company Number: GXKR2014DE004380

PATIENT

DRUGS (6)
  1. THYRONAJOD [Concomitant]
     Active Substance: LEVOTHYROXINE SODIUM\POTASSIUM IODIDE
     Indication: HYPOTHYROIDISM
     Dosage: 100 UG, UNK, PROBABLY FURTHER INTAKE
     Route: 063
  2. AMITRIPTYLINE [Suspect]
     Active Substance: AMITRIPTYLINE
     Indication: POSTPARTUM DEPRESSION
     Dosage: 25 MG, UNK
     Route: 063
     Dates: start: 20140722, end: 20140729
  3. AMITRIPTYLINE [Suspect]
     Active Substance: AMITRIPTYLINE
     Dosage: 75 UNK, UNK
     Route: 063
     Dates: start: 20140726, end: 20140731
  4. AMITRIPTYLINE [Suspect]
     Active Substance: AMITRIPTYLINE
     Dosage: 50 UNK, UNK
     Route: 063
     Dates: start: 20140724, end: 20140725
  5. TRIMIPRAMINE [Concomitant]
     Active Substance: TRIMIPRAMINE
     Indication: POSTPARTUM DEPRESSION
     Dosage: 25 MG, ONCE/SINGLE
     Route: 063
  6. SERTRALINE [Concomitant]
     Active Substance: SERTRALINE HYDROCHLORIDE
     Indication: POSTPARTUM DEPRESSION
     Dosage: 25 [MG/D ]
     Route: 063
     Dates: start: 20140718, end: 20140721

REACTIONS (2)
  - Myoclonus [Recovered/Resolved]
  - Respiratory distress [Recovered/Resolved]
